FAERS Safety Report 7380860-5 (Version None)
Quarter: 2011Q1

REPORT INFORMATION
  Report Type: 
  Country: None (occurrence: None)
  Receive Date: 20110329
  Receipt Date: 20110315
  Transmission Date: 20110831
  Serious: Yes (Disabling)
  Sender: FDA-Public Use
  Company Number: PHHY2011FR09135

PATIENT
  Sex: Female

DRUGS (6)
  1. ZOMETA [Suspect]
     Indication: METASTASES TO BONE
     Dosage: 4 MG, QMO
     Dates: start: 20080101, end: 20080801
  2. TAXOL [Concomitant]
  3. AVASTIN [Concomitant]
     Dates: start: 20100301
  4. ARIMIDEX [Concomitant]
     Dates: start: 20080101, end: 20090901
  5. CLASTOBAN [Concomitant]
  6. CHEMOTHERAPEUTICS NOS [Concomitant]
     Dates: start: 20090901, end: 20100201

REACTIONS (1)
  - OSTEONECROSIS OF JAW [None]
